FAERS Safety Report 6161917-3 (Version None)
Quarter: 2009Q2

REPORT INFORMATION
  Report Type: 
  Country: None (occurrence: None)
  Receive Date: 20090417
  Receipt Date: 20090417
  Transmission Date: 20091009
  Serious: Yes (Other)
  Sender: FDA-Public Use
  Company Number: None

PATIENT
  Age: 20 Year
  Sex: Female
  Weight: 53 kg

DRUGS (3)
  1. PRIMPERAN TAB [Suspect]
     Indication: DIARRHOEA
  2. PRIMPERAN TAB [Suspect]
     Indication: DYSPEPSIA
  3. PRIMPERAN TAB [Suspect]
     Indication: VOMITING

REACTIONS (1)
  - DYSKINESIA [None]
